FAERS Safety Report 5052427-5 (Version None)
Quarter: 2006Q3

REPORT INFORMATION
  Report Type: 
  Country: None (occurrence: None)
  Receive Date: 20060714
  Receipt Date: 20060714
  Transmission Date: 20061208
  Serious: Yes (Hospitalization)
  Sender: FDA-Public Use
  Company Number: None

PATIENT
  Sex: Male
  Weight: 83 kg

DRUGS (7)
  1. L-ASPARGINASE [Suspect]
     Dosage: 60000 MG
  2. VINCRISTINE SULFATE [Suspect]
     Dosage: 8 MG
  3. ALLOPURINOL [Suspect]
     Dosage: 7500 MG
  4. CYCLOPHOSPHAMIDE [Suspect]
     Dosage: 2390 MG
  5. DAUNORUBICIN HCL [Suspect]
     Dosage: 480 MG
  6. DEXAMETHASONE TAB [Suspect]
     Dosage: 270 MG
  7. G-CSF (FILGRASTIM, AMGEN) [Suspect]
     Dosage: 2880 MG

REACTIONS (5)
  - HYPOAESTHESIA [None]
  - PARAESTHESIA [None]
  - PERIPHERAL ARTERIAL OCCLUSIVE DISEASE [None]
  - PERIPHERAL ISCHAEMIA [None]
  - THROMBOSIS [None]
